FAERS Safety Report 12328404 (Version 1)
Quarter: 2016Q2

REPORT INFORMATION
  Report Type: Spontaneous
  Country: FR (occurrence: FR)
  Receive Date: 20160503
  Receipt Date: 20160503
  Transmission Date: 20160815
  Serious: Yes (Hospitalization)
  Sender: FDA-Public Use
  Company Number: FR-PFIZER INC-2016237626

PATIENT
  Age: 16 Year
  Sex: Female

DRUGS (1)
  1. XANAX [Suspect]
     Active Substance: ALPRAZOLAM
     Indication: ANXIETY
     Dosage: 0.25 MG, 1X/DAY
     Route: 048
     Dates: start: 20160321, end: 20160321

REACTIONS (9)
  - Depression [Recovered/Resolved]
  - Stupor [Recovered/Resolved]
  - Mutism [Recovered/Resolved]
  - Asthenia [Recovered/Resolved]
  - Conversion disorder [Recovered/Resolved]
  - Muscle rigidity [Recovered/Resolved]
  - Staring [Recovered/Resolved]
  - Malaise [Recovered/Resolved]
  - Catatonia [Recovered/Resolved]

NARRATIVE: CASE EVENT DATE: 20160322
